FAERS Safety Report 17488761 (Version 2)
Quarter: 2020Q1

REPORT INFORMATION
  Report Type: Spontaneous
  Country: FR (occurrence: FR)
  Receive Date: 20200303
  Receipt Date: 20200319
  Transmission Date: 20200409
  Serious: Yes (Other)
  Sender: FDA-Public Use
  Company Number: FR-ADDMEDICA-202000012

PATIENT
  Age: 21 Year
  Sex: Male
  Weight: 57 kg

DRUGS (2)
  1. SPECIAFOLDINE [Concomitant]
     Active Substance: FOLIC ACID
     Indication: VITAMIN SUPPLEMENTATION
     Route: 048
  2. SIKLOS [Suspect]
     Active Substance: HYDROXYUREA
     Indication: SICKLE CELL ANAEMIA WITH CRISIS
     Dosage: 850 MG / 57 KG
     Route: 048
     Dates: start: 20191030, end: 202001

REACTIONS (1)
  - Aquagenic pruritus [Recovered/Resolved]

NARRATIVE: CASE EVENT DATE: 201912
